FAERS Safety Report 8215525-0 (Version None)
Quarter: 2012Q1

REPORT INFORMATION
  Report Type: 
  Country: None (occurrence: None)
  Receive Date: 20120316
  Receipt Date: 20120305
  Transmission Date: 20120608
  Serious: Yes (Life-Threatening, Hospitalization)
  Sender: FDA-Public Use
  Company Number: NO-JNJFOC-20120301872

PATIENT
  Sex: Female

DRUGS (7)
  1. NEORAL [Suspect]
     Indication: BEHCET'S SYNDROME
     Route: 048
     Dates: start: 20081001, end: 20090925
  2. PREDNISOLONE [Concomitant]
     Indication: BEHCET'S SYNDROME
     Dosage: DOSE 5-10 MG/DAY
     Route: 048
     Dates: start: 20080414
  3. ALENDRONIC ACID [Concomitant]
     Indication: OSTEOPOROSIS
     Route: 048
     Dates: start: 20100320
  4. PARALGIN FORTE [Concomitant]
     Indication: BEHCET'S SYNDROME
     Dosage: DOSE= 400 MG PARACETAMOL/30 MG CODEINE
     Route: 048
     Dates: start: 20080414
  5. REMICADE [Suspect]
     Indication: BEHCET'S SYNDROME
     Route: 042
     Dates: start: 20100319, end: 20111108
  6. IMURAN [Suspect]
     Indication: BEHCET'S SYNDROME
     Route: 048
     Dates: start: 20090925, end: 20111108
  7. CALCIGRAN FORTE [Concomitant]
     Indication: BEHCET'S SYNDROME
     Dosage: DOSE= 500 MG CALCIUM/400UG VITAMIN D
     Route: 048
     Dates: start: 20080301

REACTIONS (1)
  - ANAPLASTIC LARGE CELL LYMPHOMA T- AND NULL-CELL TYPES [None]
